FAERS Safety Report 20170589 (Version 2)
Quarter: 2022Q2

REPORT INFORMATION
  Report Type: Spontaneous
  Country: IT (occurrence: IT)
  Receive Date: 20211210
  Receipt Date: 20220523
  Transmission Date: 20220721
  Serious: Yes (Death, Life-Threatening, Hospitalization, Other)
  Sender: FDA-Public Use
  Company Number: IT-CELGENE-ITA-20210809403

PATIENT
  Age: 77 Year
  Sex: Male

DRUGS (33)
  1. AZACITIDINE [Suspect]
     Active Substance: AZACITIDINE
     Indication: Acute myeloid leukaemia
     Dosage: UNK
     Route: 041
     Dates: start: 20210628
  2. AZACITIDINE [Suspect]
     Active Substance: AZACITIDINE
     Dosage: 75 MILLIGRAM PER SQUARE METRE
     Route: 041
     Dates: start: 20210628
  3. VENETOCLAX [Suspect]
     Active Substance: VENETOCLAX
     Indication: Acute myeloid leukaemia
     Dosage: UNK
     Route: 048
     Dates: start: 20210628, end: 20210718
  4. VENETOCLAX [Suspect]
     Active Substance: VENETOCLAX
     Dosage: 70 MILLIGRAM
     Route: 048
     Dates: start: 20210701
  5. VENETOCLAX [Suspect]
     Active Substance: VENETOCLAX
     Dosage: 20 MILLIGRAM
     Route: 048
     Dates: start: 20210629
  6. VENETOCLAX [Suspect]
     Active Substance: VENETOCLAX
     Dosage: 50 MILLIGRAM
     Route: 048
     Dates: start: 20210630
  7. VENETOCLAX [Suspect]
     Active Substance: VENETOCLAX
     Dosage: 10 MILLIGRAM
     Route: 048
     Dates: start: 20210628
  8. PEVONEDISTAT [Suspect]
     Active Substance: PEVONEDISTAT
     Indication: Acute myeloid leukaemia
     Dosage: UNK
     Route: 065
     Dates: start: 20210628, end: 20210718
  9. PEVONEDISTAT [Suspect]
     Active Substance: PEVONEDISTAT
     Dosage: 20 MILLIGRAM PER SQUARE METRE
     Route: 042
     Dates: start: 20210628, end: 20210718
  10. NALOXONE HYDROCHLORIDE\OXYCODONE HYDROCHLORIDE [Concomitant]
     Active Substance: NALOXONE HYDROCHLORIDE\OXYCODONE HYDROCHLORIDE
     Indication: Product used for unknown indication
     Dosage: UNK
     Route: 065
     Dates: start: 20210604, end: 20210704
  11. NADROPARIN CALCIUM [Concomitant]
     Active Substance: NADROPARIN CALCIUM
     Indication: Thrombosis prophylaxis
     Dosage: UNK
     Route: 065
     Dates: start: 20210728, end: 20210818
  12. NADROPARIN CALCIUM [Concomitant]
     Active Substance: NADROPARIN CALCIUM
     Dosage: UNK
     Route: 065
     Dates: start: 20210612, end: 20210708
  13. METHYLPREDNISOLONE [Concomitant]
     Active Substance: METHYLPREDNISOLONE
     Indication: Inflammation
     Dosage: UNK
     Route: 065
     Dates: start: 20210731, end: 20210805
  14. METHYLPREDNISOLONE [Concomitant]
     Active Substance: METHYLPREDNISOLONE
     Indication: Pain
     Dosage: UNK
     Route: 065
     Dates: start: 20210610, end: 20210708
  15. LASIX [Concomitant]
     Active Substance: FUROSEMIDE
     Indication: Product used for unknown indication
     Dosage: UNK
     Route: 065
     Dates: start: 20210603, end: 20210619
  16. HYDROXYUREA [Concomitant]
     Active Substance: HYDROXYUREA
     Indication: Leukocytosis
     Dosage: UNK
     Route: 065
     Dates: start: 20210816
  17. CEFTRIAXONE SODIUM [Concomitant]
     Active Substance: CEFTRIAXONE SODIUM
     Indication: Bacterial infection
     Dosage: UNK
     Route: 065
     Dates: start: 20210719, end: 20210727
  18. OMEPRAZOLE [Concomitant]
     Active Substance: OMEPRAZOLE
     Indication: Prophylaxis
     Dosage: UNK
     Route: 065
     Dates: start: 20210604, end: 20210810
  19. OMEPRAZOLE [Concomitant]
     Active Substance: OMEPRAZOLE
     Indication: Gastritis prophylaxis
  20. CYTARABINE [Concomitant]
     Active Substance: CYTARABINE
     Indication: Cytoreductive surgery
     Dosage: UNK
     Route: 065
     Dates: start: 20210817
  21. CYTARABINE [Concomitant]
     Active Substance: CYTARABINE
     Indication: Hyperleukocytosis
     Dosage: UNK
  22. AMIODARONE [Concomitant]
     Active Substance: AMIODARONE
     Indication: Atrial fibrillation
     Dosage: UNK
     Route: 065
     Dates: start: 20210818, end: 20210819
  23. AMIODARONE [Concomitant]
     Active Substance: AMIODARONE
     Indication: Respiratory failure
     Dosage: UNK, QD
     Route: 065
     Dates: start: 20210820
  24. AMIODARONE [Concomitant]
     Active Substance: AMIODARONE
     Indication: Pleural effusion
  25. MEROPENEM [Concomitant]
     Active Substance: MEROPENEM
     Indication: Prophylaxis
     Dosage: UNK
     Route: 065
     Dates: start: 20210610, end: 20210623
  26. MEROPENEM [Concomitant]
     Active Substance: MEROPENEM
     Indication: Pyrexia
     Dosage: UNK
     Route: 065
     Dates: start: 20210614, end: 20210623
  27. TAPENTADOL [Concomitant]
     Active Substance: TAPENTADOL
     Indication: Leukocytosis
     Dosage: UNK
     Route: 065
     Dates: start: 20210816
  28. PREGABALIN [Concomitant]
     Active Substance: PREGABALIN
     Indication: Leukocytosis
     Dosage: UNK
     Route: 065
     Dates: start: 20210816
  29. TARGOSID [Concomitant]
     Active Substance: TEICOPLANIN
     Indication: Infection prophylaxis
     Dosage: UNK
     Dates: start: 20210614, end: 20210621
  30. TARGOSID [Concomitant]
     Active Substance: TEICOPLANIN
     Indication: Pyrexia
  31. NEBIVOLOL [Concomitant]
     Active Substance: NEBIVOLOL
     Indication: Chronic obstructive pulmonary disease
     Dosage: UNK
     Dates: start: 20210606, end: 20210629
  32. BISOPROLOL [Concomitant]
     Active Substance: BISOPROLOL
     Indication: Chronic obstructive pulmonary disease
     Dosage: UNK
     Dates: start: 20210630, end: 20210819
  33. NALOXONE HYDROCHLORIDE [Concomitant]
     Active Substance: NALOXONE HYDROCHLORIDE
     Indication: Pain
     Dosage: UNK
     Dates: start: 20210604, end: 20210704

REACTIONS (2)
  - Pyrexia [Fatal]
  - Febrile neutropenia [Recovered/Resolved]

NARRATIVE: CASE EVENT DATE: 20210719
